FAERS Safety Report 12882897 (Version 3)
Quarter: 2016Q4

REPORT INFORMATION
  Report Type: Spontaneous
  Country: US (occurrence: US)
  Receive Date: 20161025
  Receipt Date: 20161130
  Transmission Date: 20170207
  Serious: Yes (Other)
  Sender: FDA-Public Use
  Company Number: US-BAYER-2016-200473

PATIENT
  Age: 78 Year
  Sex: Male

DRUGS (5)
  1. XOFIGO [Suspect]
     Active Substance: RADIUM RA-223 DICHLORIDE
     Indication: PROSTATE CANCER METASTATIC
     Dosage: ONCE EVERY 28 DAYS
     Route: 041
     Dates: start: 20160712, end: 20160712
  2. XOFIGO [Suspect]
     Active Substance: RADIUM RA-223 DICHLORIDE
     Indication: PROSTATE CANCER METASTATIC
     Dosage: ONCE EVERY 28 DAYS
     Route: 041
     Dates: start: 20160809, end: 20160809
  3. XOFIGO [Suspect]
     Active Substance: RADIUM RA-223 DICHLORIDE
     Indication: PROSTATE CANCER METASTATIC
     Dosage: ONCE EVERY 28 DAYS
     Route: 041
     Dates: start: 20161004, end: 20161004
  4. XOFIGO [Suspect]
     Active Substance: RADIUM RA-223 DICHLORIDE
     Indication: PROSTATE CANCER METASTATIC
     Dosage: ONCE EVERY 28 DAYS
     Route: 041
     Dates: start: 20160906, end: 20160906
  5. XOFIGO [Suspect]
     Active Substance: RADIUM RA-223 DICHLORIDE
     Indication: PROSTATE CANCER METASTATIC
     Dosage: ONCE EVERY 28 DAYS
     Route: 041
     Dates: start: 20161101, end: 20161101

REACTIONS (8)
  - Inflammation [Not Recovered/Not Resolved]
  - Myalgia [Not Recovered/Not Resolved]
  - Abasia [Not Recovered/Not Resolved]
  - Pain in extremity [Not Recovered/Not Resolved]
  - Myopathy [Not Recovered/Not Resolved]
  - Pain [Not Recovered/Not Resolved]
  - Arthralgia [Not Recovered/Not Resolved]
  - Mobility decreased [Not Recovered/Not Resolved]
